FAERS Safety Report 23776851 (Version 1)
Quarter: 2024Q2

REPORT INFORMATION
  Report Type: Spontaneous
  Country: US (occurrence: US)
  Receive Date: 20240424
  Receipt Date: 20240424
  Transmission Date: 20240716
  Serious: Yes (Death, Hospitalization, Other)
  Sender: FDA-Public Use
  Company Number: US-SUN PHARMACEUTICAL INDUSTRIES LTD-2024R1-442607

PATIENT
  Age: 39 Year
  Sex: Male

DRUGS (3)
  1. AZITHROMYCIN [Suspect]
     Active Substance: AZITHROMYCIN
     Indication: Acquired immunodeficiency syndrome
     Route: 065
  2. BACTRIM [Suspect]
     Active Substance: SULFAMETHOXAZOLE\TRIMETHOPRIM
     Indication: Acquired immunodeficiency syndrome
     Route: 065
  3. METHYLPREDNISOLONE [Suspect]
     Active Substance: METHYLPREDNISOLONE
     Indication: Immune reconstitution inflammatory syndrome
     Route: 065

REACTIONS (7)
  - Cardiac arrest [Unknown]
  - Multiple organ dysfunction syndrome [Fatal]
  - Sepsis [Fatal]
  - Condition aggravated [Unknown]
  - COVID-19 [Unknown]
  - Respiratory failure [Unknown]
  - Septic shock [Unknown]
